FAERS Safety Report 4417142-7 (Version None)
Quarter: 2004Q3

REPORT INFORMATION
  Report Type: 
  Country: None (occurrence: None)
  Receive Date: 20040806
  Receipt Date: 20011001
  Transmission Date: 20050211
  Serious: Yes (Disabling, Other)
  Sender: FDA-Public Use
  Company Number: US-MERCK-01100254

PATIENT
  Age: 75 Year
  Sex: Male

DRUGS (16)
  1. [COMPOSITION UNSPECIFIED] [Concomitant]
     Route: 065
  2. FOSAMAX [Suspect]
     Indication: OSTEOPENIA
     Route: 048
     Dates: start: 20010731, end: 20010801
  3. FOSAMAX [Concomitant]
     Indication: OSTEOPOROSIS
     Route: 065
  4. ALOE [Concomitant]
     Route: 065
  5. ASCORBIC ACID [Concomitant]
     Route: 065
  6. CALCIUM (UNSPECIFIED) [Concomitant]
     Route: 065
  7. CRATAEGUS [Concomitant]
     Route: 065
  8. DIURETIC (UNSPECIFIED) [Concomitant]
     Route: 065
  9. MONOPRIL [Concomitant]
     Route: 065
  10. HERBS (UNSPECIFIED) [Concomitant]
     Route: 065
  11. MAGNESIUM ASPARTATE [Concomitant]
     Route: 065
  12. PRILOSEC [Concomitant]
     Route: 065
  13. TESTOSTERONE [Concomitant]
     Route: 065
  14. VITAMIN A [Concomitant]
     Route: 065
  15. VITAMIN D (UNSPECIFIED) [Concomitant]
     Route: 065
  16. ONE-A-DAY MEN'S [Concomitant]
     Route: 065

REACTIONS (6)
  - BARRETT'S OESOPHAGUS [None]
  - ERYTHEMA [None]
  - PHOTOSENSITIVITY REACTION [None]
  - PRURITUS [None]
  - RASH [None]
  - URTICARIA [None]
